FAERS Safety Report 9253251 (Version 1)
Quarter: 2013Q2

REPORT INFORMATION
  Report Type: Spontaneous
  Country: IE (occurrence: IE)
  Receive Date: 20130424
  Receipt Date: 20130424
  Transmission Date: 20140414
  Serious: Yes (Other)
  Sender: FDA-Public Use
  Company Number: PHHY2013IE039478

PATIENT
  Age: 32 Year
  Sex: Male

DRUGS (2)
  1. ROPINIROLE [Suspect]
     Indication: PARKINSON^S DISEASE
     Dosage: 8 MG, QD
  2. SELEGILINE [Suspect]
     Indication: PARKINSON^S DISEASE
     Dosage: 5 MG, QD

REACTIONS (7)
  - Suicidal ideation [Unknown]
  - Impulse-control disorder [Recovering/Resolving]
  - Binge eating [Recovering/Resolving]
  - Pathological gambling [Recovered/Resolved]
  - Compulsive shopping [Recovering/Resolving]
  - Irritability [Recovering/Resolving]
  - Frustration [Recovering/Resolving]
